FAERS Safety Report 25766057 (Version 6)
Quarter: 2025Q4

REPORT INFORMATION
  Report Type: Report from Study
  Country: EU (occurrence: EU)
  Receive Date: 20250905
  Receipt Date: 20251116
  Transmission Date: 20260118
  Serious: Yes (Hospitalization)
  Sender: ABBVIE
  Company Number: EU-ABBVIE-6443474

PATIENT
  Age: 76 Year
  Sex: Male

DRUGS (4)
  1. CARBIDOPA\LEVODOPA [Suspect]
     Active Substance: CARBIDOPA\LEVODOPA
     Indication: Parkinson^s disease
     Dosage: MD 11.0ML; CRT 3.8ML/H; ED 1.5ML, LAST ADMIN DATE: 2025
     Route: 050
     Dates: start: 20250204
  2. CARBIDOPA\LEVODOPA [Suspect]
     Active Substance: CARBIDOPA\LEVODOPA
     Dosage: MD: 10.5 ML; CRT: 3.8 ML/H; ED: 1.5 ML?FIRST ADMIN DATE: 2025?LAST ADMIN DATE: 2025
     Route: 050
  3. CARBIDOPA\LEVODOPA [Suspect]
     Active Substance: CARBIDOPA\LEVODOPA
     Dosage: MD: 10.5ML; CRT 3.6ML/H; ED: 1.5ML?FIRST ADMIN DATE: 2025?LAST ADMIN DATE: 2025
     Route: 050
  4. CARBIDOPA\LEVODOPA [Suspect]
     Active Substance: CARBIDOPA\LEVODOPA
     Dosage: MD: 11.0ML; CRT: 3.6ML/H; ED: 1.5ML?FIRST ADMIN DATE: 2025
     Route: 050

REACTIONS (8)
  - Fall [Not Recovered/Not Resolved]
  - Pneumonia [Recovered/Resolved]
  - Movement disorder [Recovering/Resolving]
  - Confusional state [Recovering/Resolving]
  - Dehydration [Recovering/Resolving]
  - Joint injury [Recovering/Resolving]
  - Convalescent [Unknown]
  - Stoma site reaction [Unknown]

NARRATIVE: CASE EVENT DATE: 20250101
